FAERS Safety Report 10336015 (Version 2)
Quarter: 2014Q3

REPORT INFORMATION
  Report Type: Spontaneous
  Country: US (occurrence: US)
  Receive Date: 20140723
  Receipt Date: 20140723
  Transmission Date: 20150326
  Serious: No
  Sender: FDA-Public Use
  Company Number: US-BRISTOL-MYERS SQUIBB COMPANY-19484385

PATIENT
  Age: 71 Year
  Sex: Male

DRUGS (11)
  1. LASIX [Concomitant]
     Active Substance: FUROSEMIDE
  2. DICYCLOMINE [Concomitant]
     Active Substance: DICYCLOMINE HYDROCHLORIDE
  3. WARFARIN SODIUM. [Suspect]
     Active Substance: WARFARIN SODIUM
     Indication: PULMONARY EMBOLISM
     Dosage: SEP2011-MAR/APR2012;?SEP2012-MAR2013
     Route: 048
     Dates: start: 201109, end: 20130318
  4. ATENOLOL. [Concomitant]
     Active Substance: ATENOLOL
  5. ISOSORBIDE [Concomitant]
     Active Substance: ISOSORBIDE
  6. BYSTOLIC [Concomitant]
     Active Substance: NEBIVOLOL HYDROCHLORIDE
  7. BABY ASPIRIN [Concomitant]
     Active Substance: ASPIRIN
  8. LOSARTAN [Concomitant]
     Active Substance: LOSARTAN
  9. BUMETANIDE. [Concomitant]
     Active Substance: BUMETANIDE
  10. XANAX [Concomitant]
     Active Substance: ALPRAZOLAM
  11. OMEPRAZOLE. [Concomitant]
     Active Substance: OMEPRAZOLE

REACTIONS (5)
  - International normalised ratio fluctuation [Unknown]
  - Fatigue [Unknown]
  - Cognitive disorder [Recovering/Resolving]
  - Alopecia [Unknown]
  - Lethargy [Unknown]
